FAERS Safety Report 6981978-9 (Version None)
Quarter: 2010Q3

REPORT INFORMATION
  Report Type: 
  Country: None (occurrence: None)
  Receive Date: 20100914
  Receipt Date: 20091028
  Transmission Date: 20110219
  Serious: Yes (Other)
  Sender: FDA-Public Use
  Company Number: US-PFIZER INC-2009291231

PATIENT
  Sex: Female
  Weight: 47.619 kg

DRUGS (3)
  1. LYRICA [Suspect]
     Indication: NEURALGIA
     Dosage: 75 MG, 3X/DAY
     Dates: start: 20080101, end: 20090101
  2. IBUPROFEN [Suspect]
     Indication: PAIN
     Dosage: 400 MG, 2X/DAY
  3. IBUPROFEN [Suspect]
     Indication: NEURALGIA

REACTIONS (5)
  - HAEMATURIA [None]
  - MUSCULOSKELETAL PAIN [None]
  - MYALGIA [None]
  - NEURALGIA [None]
  - ULCER HAEMORRHAGE [None]
